FAERS Safety Report 6728953-7 (Version None)
Quarter: 2010Q2

REPORT INFORMATION
  Report Type: 
  Country: None (occurrence: None)
  Receive Date: 20100517
  Receipt Date: 20100308
  Transmission Date: 20101027
  Serious: No
  Sender: FDA-Public Use
  Company Number: US-ABBOTT-10P-163-0632055-00

PATIENT
  Age: 49 Year
  Sex: Female
  Weight: 77.18 kg

DRUGS (6)
  1. SIMCOR [Suspect]
     Indication: BLOOD CHOLESTEROL INCREASED
     Dosage: 500/20 MG AT BEDTIME
     Route: 048
     Dates: start: 20100303, end: 20100305
  2. JANUMET [Concomitant]
     Indication: DIABETES MELLITUS
     Dosage: 50/1000MG PER TABLET
     Route: 048
  3. LANTUS [Concomitant]
     Indication: DRUG USE FOR UNKNOWN INDICATION
  4. HUMALOG [Concomitant]
     Indication: DRUG USE FOR UNKNOWN INDICATION
  5. LEXAPRO [Concomitant]
     Indication: DEPRESSION
  6. DIOVAN [Concomitant]
     Indication: HYPERTENSION
     Route: 048

REACTIONS (2)
  - ENERGY INCREASED [None]
  - INSOMNIA [None]
